FAERS Safety Report 12759499 (Version 2)
Quarter: 2016Q3

REPORT INFORMATION
  Report Type: Spontaneous
  Country: US (occurrence: US)
  Receive Date: 20160919
  Receipt Date: 20160922
  Transmission Date: 20161109
  Serious: Yes (Death, Hospitalization)
  Sender: FDA-Public Use
  Company Number: US-BRACCO-013955

PATIENT
  Age: 67 Year
  Sex: Female
  Weight: 58 kg

DRUGS (12)
  1. ATIVAN [Concomitant]
     Active Substance: LORAZEPAM
     Dates: start: 20160907, end: 20160907
  2. ATIVAN [Concomitant]
     Active Substance: LORAZEPAM
     Indication: ANXIETY
     Dosage: 0.5-1 TABLET EVERY 8 HOURS AS NEEDED
     Route: 048
  3. ZOFRAN [Concomitant]
     Active Substance: ONDANSETRON HYDROCHLORIDE
     Dosage: 2 TABLET BID FOR 3 DAYS FOLLOWING CHEMOTHERAPY
  4. LOVENOX [Concomitant]
     Active Substance: ENOXAPARIN SODIUM
     Route: 058
  5. ISOVUE 370 [Suspect]
     Active Substance: IOPAMIDOL
     Indication: COMPUTERISED TOMOGRAM
     Dosage: 2 ML/SEC
     Route: 050
     Dates: start: 20160907, end: 20160907
  6. HERCEPTIN [Concomitant]
     Active Substance: TRASTUZUMAB
     Route: 042
  7. EMLA [Concomitant]
     Active Substance: LIDOCAINE\PRILOCAINE
     Dosage: APPLIED TO AFFECTED AREA ONCE
  8. LOMOTIL [Concomitant]
     Active Substance: ATROPINE SULFATE\DIPHENOXYLATE HYDROCHLORIDE
     Indication: DIARRHOEA
     Dosage: 2.5-0.025  MG AS NEEDED
  9. ASPIRIN. [Concomitant]
     Active Substance: ASPIRIN
     Route: 048
  10. ROXICODONE [Concomitant]
     Active Substance: OXYCODONE HYDROCHLORIDE
     Dosage: 1 TABLET EVERY 4 HOURS AS NEEDED
     Route: 048
  11. RIOCIGUAT [Concomitant]
     Active Substance: RIOCIGUAT
     Route: 048
  12. OXYGEN. [Concomitant]
     Active Substance: OXYGEN
     Dosage: BY NASAL ROUTE AT BEDTIME
     Route: 055

REACTIONS (2)
  - Cardio-respiratory arrest [Recovered/Resolved]
  - Adverse event [Fatal]

NARRATIVE: CASE EVENT DATE: 20160907
